FAERS Safety Report 7636978-2 (Version None)
Quarter: 2011Q3

REPORT INFORMATION
  Report Type: 
  Country: None (occurrence: None)
  Receive Date: 20110722
  Receipt Date: 20110722
  Transmission Date: 20111222
  Serious: Yes (Life-Threatening, Hospitalization, Disabling)
  Sender: FDA-Public Use
  Company Number: None

PATIENT
  Sex: Male
  Weight: 53.5 kg

DRUGS (1)
  1. VALPROIC ACID [Suspect]
     Indication: CONVULSION
     Dosage: 500 MG Q8H IV
     Route: 042
     Dates: start: 20110414, end: 20110629

REACTIONS (4)
  - VOMITING [None]
  - CONVULSION [None]
  - NAUSEA [None]
  - MITOCHONDRIAL DNA MUTATION [None]
